FAERS Safety Report 15603372 (Version 3)
Quarter: 2019Q2

REPORT INFORMATION
  Report Type: Report from Study
  Country: US (occurrence: US)
  Receive Date: 20181109
  Receipt Date: 20190618
  Transmission Date: 20190711
  Serious: Yes (Hospitalization)
  Sender: FDA-Public Use
  Company Number: US-ACTELION-A-NJ2018-181447

PATIENT
  Sex: Female

DRUGS (1)
  1. OPSUMIT [Suspect]
     Active Substance: MACITENTAN
     Indication: PRODUCT USED FOR UNKNOWN INDICATION
     Dosage: 10 MG, UNK
     Route: 048

REACTIONS (7)
  - Pharyngitis streptococcal [Unknown]
  - Transfusion [Unknown]
  - Product dose omission [Unknown]
  - Pain [Unknown]
  - Thrombosis [Unknown]
  - Sickle cell anaemia with crisis [Unknown]
  - Dyspnoea [Unknown]
